FAERS Safety Report 9414781 (Version 3)
Quarter: 2015Q1

REPORT INFORMATION
  Report Type: Spontaneous
  Country: US (occurrence: None)
  Receive Date: 20130718
  Receipt Date: 20150316
  Transmission Date: 20150721
  Serious: Yes (Life-Threatening, Hospitalization)
  Sender: FDA-Public Use
  Company Number: 1713747-2013-99922

PATIENT
  Sex: Female

DRUGS (6)
  1. GRANUFLO [Concomitant]
     Active Substance: ACETIC ACID\SODIUM ACETATE
  2. NATURELITE [Concomitant]
     Active Substance: DIETARY SUPPLEMENT
  3. BLOODLINES [Concomitant]
  4. FRESENIUS HEMODIALYSIS MACINE [Concomitant]
  5. DIALYZER [Concomitant]
  6. 0.9% SODIUM CHLORIDE [Suspect]
     Active Substance: SODIUM CHLORIDE
     Indication: CHRONIC KIDNEY DISEASE
     Dosage: HEMODIALYSIS
     Dates: start: 20130702

REACTIONS (1)
  - Unresponsive to stimuli [None]

NARRATIVE: CASE EVENT DATE: 20130701
